FAERS Safety Report 23572863 (Version 2)
Quarter: 2024Q2

REPORT INFORMATION
  Report Type: Report from Study
  Country: CO (occurrence: CO)
  Receive Date: 20240227
  Receipt Date: 20240404
  Transmission Date: 20240715
  Serious: Yes (Hospitalization, Other)
  Sender: FDA-Public Use
  Company Number: CO-ABBVIE-5654898

PATIENT
  Age: 47 Year
  Sex: Female
  Weight: 67 kg

DRUGS (1)
  1. SKYRIZI [Suspect]
     Active Substance: RISANKIZUMAB-RZAA
     Indication: Psoriasis
     Dosage: STRENGTH: 150 MILLIGRAM
     Route: 058
     Dates: start: 20220813, end: 20231216

REACTIONS (12)
  - Joint swelling [Unknown]
  - Arthralgia [Recovering/Resolving]
  - Purulence [Unknown]
  - Arthritis [Recovering/Resolving]
  - Diabetic foot [Unknown]
  - Joint injury [Unknown]
  - Skin exfoliation [Unknown]
  - Psoriatic arthropathy [Unknown]
  - Pain in extremity [Unknown]
  - Inflammation [Unknown]
  - Immune system disorder [Unknown]
  - Immunoglobulins decreased [Unknown]

NARRATIVE: CASE EVENT DATE: 20240201
